FAERS Safety Report 5895375-0 (Version None)
Quarter: 2008Q3

REPORT INFORMATION
  Report Type: 
  Country: None (occurrence: None)
  Receive Date: 20080923
  Receipt Date: 20080923
  Transmission Date: 20090109
  Serious: Yes (Disabling)
  Sender: FDA-Public Use
  Company Number: None

PATIENT
  Sex: Female
  Weight: 92.25 kg

DRUGS (1)
  1. AMLODIPINE [Suspect]
     Indication: HYPERTENSION
     Dosage: ONE TABLET DAILY PO
     Route: 048
     Dates: start: 20080806

REACTIONS (2)
  - CHEST DISCOMFORT [None]
  - CHEST PAIN [None]
